FAERS Safety Report 9419527 (Version 1)
Quarter: 2013Q3

REPORT INFORMATION
  Report Type: Spontaneous
  Country: AU (occurrence: AU)
  Receive Date: 20130725
  Receipt Date: 20130725
  Transmission Date: 20140515
  Serious: Yes (Death)
  Sender: FDA-Public Use
  Company Number: AU-B.I. PHARMACEUTICALS,INC./RIDGEFIELD-2013-AU-00890AU

PATIENT
  Sex: Male

DRUGS (9)
  1. PRADAXA [Suspect]
     Indication: CEREBROVASCULAR ACCIDENT PROPHYLAXIS
     Dosage: 220 MG
     Dates: start: 20110921, end: 201211
  2. PRADAXA [Suspect]
     Indication: ATRIAL FIBRILLATION
  3. SYMBICORT [Concomitant]
     Dosage: 400/12
  4. SPIRIVA [Concomitant]
  5. VENTOLIN [Concomitant]
  6. LEXAPRO [Concomitant]
  7. DIGOXIN [Concomitant]
  8. ATROVENT NEBULES [Concomitant]
  9. AMIODARONE [Concomitant]

REACTIONS (1)
  - Chronic obstructive pulmonary disease [Fatal]
